FAERS Safety Report 5838935-5 (Version None)
Quarter: 2008Q3

REPORT INFORMATION
  Report Type: 
  Country: None (occurrence: None)
  Receive Date: 20080808
  Receipt Date: 20080805
  Transmission Date: 20090109
  Serious: Yes (Life-Threatening, Other)
  Sender: FDA-Public Use
  Company Number: PHHY2008JP13236

PATIENT
  Sex: Male
  Weight: 2 kg

DRUGS (1)
  1. VOLTAREN [Suspect]
     Dosage: MATERNAL DOSE: 50 MG /DAY
     Route: 064
     Dates: start: 20080626, end: 20080626

REACTIONS (11)
  - BLOOD BILIRUBIN INCREASED [None]
  - BLOOD LACTATE DEHYDROGENASE INCREASED [None]
  - CONVULSION [None]
  - DRUG EXPOSURE DURING PREGNANCY [None]
  - ENDOTRACHEAL INTUBATION [None]
  - MECHANICAL VENTILATION [None]
  - NEONATAL RESPIRATORY FAILURE [None]
  - PATENT DUCTUS ARTERIOSUS [None]
  - PO2 DECREASED [None]
  - PREMATURE BABY [None]
  - PULMONARY HAEMORRHAGE [None]
